FAERS Safety Report 8947095 (Version 1)
Quarter: 2012Q4

REPORT INFORMATION
  Report Type: 
  Country: US (occurrence: US)
  Receive Date: 20121205
  Receipt Date: 20121205
  Transmission Date: 20130627
  Serious: No
  Sender: FDA-Public Use
  Company Number: US-B.I. PHARMACEUTICALS,INC./RIDGEFIELD-2012-BI-01700BP

PATIENT
  Age: 82 None
  Sex: Female

DRUGS (1)
  1. PRADAXA [Suspect]
     Indication: DRUG THERAPY
     Dosage: 300 mg
     Route: 048
     Dates: start: 201202

REACTIONS (5)
  - Nausea [Not Recovered/Not Resolved]
  - Vomiting [Not Recovered/Not Resolved]
  - Decreased appetite [Not Recovered/Not Resolved]
  - Headache [Not Recovered/Not Resolved]
  - Drug dispensing error [Recovered/Resolved]
